FAERS Safety Report 19635115 (Version 1)
Quarter: 2021Q3

REPORT INFORMATION
  Report Type: Report from Study
  Country: US (occurrence: US)
  Receive Date: 20210730
  Receipt Date: 20210730
  Transmission Date: 20211014
  Serious: No
  Sender: FDA-Public Use
  Company Number: US-BIOVITRUM-2020US3773

PATIENT
  Age: 35 Year
  Sex: Female

DRUGS (1)
  1. KINERET [Suspect]
     Active Substance: ANAKINRA
     Indication: PERICARDIAL DISEASE
     Route: 058
     Dates: start: 20200701

REACTIONS (6)
  - Nasopharyngitis [Unknown]
  - Off label use [Not Recovered/Not Resolved]
  - Injection site erythema [Unknown]
  - Ligament sprain [Unknown]
  - Liquid product physical issue [Unknown]
  - Product dose omission issue [Unknown]

NARRATIVE: CASE EVENT DATE: 20200701
